FAERS Safety Report 25901107 (Version 1)
Quarter: 2025Q4

REPORT INFORMATION
  Report Type: Spontaneous
  Country: US (occurrence: US)
  Receive Date: 20251009
  Receipt Date: 20251009
  Transmission Date: 20260118
  Serious: No
  Sender: MALLINCKRODT
  Company Number: US-MALLINCKRODT-MNK202505723

PATIENT
  Age: 43 Year
  Sex: Female
  Weight: 311 kg

DRUGS (1)
  1. CORTICOTROPIN [Suspect]
     Active Substance: CORTICOTROPIN
     Indication: Systemic lupus erythematosus
     Dosage: 80 UNITS
     Route: 058
     Dates: start: 202510

REACTIONS (3)
  - Injection site erythema [Unknown]
  - Injection site warmth [Unknown]
  - Injection site mass [Unknown]

NARRATIVE: CASE EVENT DATE: 20251001
